FAERS Safety Report 8299034-9 (Version None)
Quarter: 2012Q2

REPORT INFORMATION
  Report Type: 
  Country: None (occurrence: None)
  Receive Date: 20120419
  Receipt Date: 20120416
  Transmission Date: 20120825
  Serious: Yes (Other)
  Sender: FDA-Public Use
  Company Number: US-PFIZER INC-2012095037

PATIENT
  Sex: Female

DRUGS (9)
  1. LISINOPRIL [Concomitant]
     Indication: HYPERTENSION
     Dosage: 20 MG, DAILY
  2. BUMETANIDE [Concomitant]
     Dosage: 1 MG, 2X/DAY
  3. KLOR-CON [Concomitant]
     Dosage: UNK, DAILY
  4. METOPROLOL [Concomitant]
     Dosage: UNK
  5. METFORMIN [Concomitant]
     Indication: DIABETES MELLITUS
     Dosage: 500 MG, 4X/DAY
  6. VITRON-C [Concomitant]
     Indication: ANAEMIA
     Dosage: UNK
  7. ZITHROMAX [Suspect]
     Indication: INFECTION
     Dosage: 500MG OR 250MG AS PRESCRIBED AS NEEDED
     Dates: start: 19970101
  8. DOXYCYCLINE HYCLATE [Suspect]
     Indication: INFECTION
     Dosage: UNK, AS NEEDED
     Dates: start: 19970101
  9. GLYBURIDE [Concomitant]
     Indication: DIABETES MELLITUS
     Dosage: 5MG TWO TABLETS 2X/DAY

REACTIONS (3)
  - MYOCARDIAL INFARCTION [None]
  - WEIGHT DECREASED [None]
  - ATRIAL TACHYCARDIA [None]
